FAERS Safety Report 11166067 (Version 1)
Quarter: 2015Q2

REPORT INFORMATION
  Report Type: Spontaneous
  Country: BR (occurrence: BR)
  Receive Date: 20150604
  Receipt Date: 20150604
  Transmission Date: 20150821
  Serious: Yes (Other)
  Sender: FDA-Public Use
  Company Number: BR-JNJFOC-20150600781

PATIENT
  Age: 83 Year
  Sex: Female

DRUGS (2)
  1. IMOSEC [Suspect]
     Active Substance: LOPERAMIDE
     Indication: DIARRHOEA
     Route: 065
  2. IMOSEC [Suspect]
     Active Substance: LOPERAMIDE
     Route: 065

REACTIONS (3)
  - Micturition disorder [Unknown]
  - Peripheral swelling [Unknown]
  - Hypertension [Unknown]
